FAERS Safety Report 21340542 (Version 2)
Quarter: 2022Q4

REPORT INFORMATION
  Report Type: Report from Study
  Country: AR (occurrence: AR)
  Receive Date: 20220916
  Receipt Date: 20221019
  Transmission Date: 20230112
  Serious: No
  Sender: FDA-Public Use
  Company Number: AR-NOVARTISPH-NVSC2021AR080228

PATIENT
  Age: 58 Year
  Sex: Male

DRUGS (2)
  1. COSENTYX [Suspect]
     Active Substance: SECUKINUMAB
     Indication: Psoriasis
     Dosage: 300 MG, QMO
     Route: 058
     Dates: start: 20191007, end: 202003
  2. COSENTYX [Suspect]
     Active Substance: SECUKINUMAB
     Indication: Psoriatic arthropathy
     Dosage: 300 MG, QMO
     Route: 058
     Dates: start: 202003

REACTIONS (11)
  - Skin depigmentation [Recovered/Resolved]
  - Scab [Not Recovered/Not Resolved]
  - Tooth loss [Unknown]
  - Tooth disorder [Not Recovered/Not Resolved]
  - Skin exfoliation [Unknown]
  - Pigmentation disorder [Recovering/Resolving]
  - COVID-19 [Unknown]
  - Pyrexia [Unknown]
  - Apathy [Unknown]
  - Decreased appetite [Unknown]
  - Hypertension [Unknown]

NARRATIVE: CASE EVENT DATE: 20210201
